FAERS Safety Report 24533020 (Version 1)
Quarter: 2024Q4

REPORT INFORMATION
  Report Type: Report from Study
  Country: US (occurrence: US)
  Receive Date: 20241022
  Receipt Date: 20241022
  Transmission Date: 20250115
  Serious: Yes (Hospitalization, Other)
  Sender: ABBVIE
  Company Number: US-ABBVIE-5924066

PATIENT
  Age: 69 Year
  Sex: Female
  Weight: 78.017 kg

DRUGS (4)
  1. HUMIRA [Suspect]
     Active Substance: ADALIMUMAB
     Indication: Crohn^s disease
     Dosage: FORM STRENGTH: 40 MILLIGRAM
     Route: 058
     Dates: start: 202312
  2. ATORVASTATIN [Concomitant]
     Active Substance: ATORVASTATIN
     Indication: Product used for unknown indication
  3. IRBESARTAN [Concomitant]
     Active Substance: IRBESARTAN
     Indication: Hypertension
  4. DULOXETINE [Concomitant]
     Active Substance: DULOXETINE
     Indication: Anxiety

REACTIONS (8)
  - Cardiac perforation [Not Recovered/Not Resolved]
  - Acne [Not Recovered/Not Resolved]
  - Crohn^s disease [Unknown]
  - Psoriasis [Not Recovered/Not Resolved]
  - Dyspepsia [Unknown]
  - Fatigue [Unknown]
  - Brain stem stroke [Recovered/Resolved]
  - Pain [Unknown]

NARRATIVE: CASE EVENT DATE: 20240501
